FAERS Safety Report 17326266 (Version 1)
Quarter: 2020Q1

REPORT INFORMATION
  Report Type: Spontaneous
  Country: US (occurrence: US)
  Receive Date: 20200110
  Receipt Date: 20200110
  Transmission Date: 20200409
  Serious: Yes (Hospitalization)
  Sender: FDA-Public Use
  Company Number: None

PATIENT
  Sex: Male

DRUGS (38)
  1. TERAZOSIN [Concomitant]
     Active Substance: TERAZOSIN HYDROCHLORIDE
  2. TOBI [Concomitant]
     Active Substance: TOBRAMYCIN
  3. PREDNISONE. [Concomitant]
     Active Substance: PREDNISONE
  4. TAZTIA XT [Concomitant]
     Active Substance: DILTIAZEM HYDROCHLORIDE
  5. CARDIZEM CD CAPSULE [Concomitant]
  6. ETHAMBUTOL [Concomitant]
     Active Substance: ETHAMBUTOL HYDROCHLORIDE
  7. BYSTOLIC [Concomitant]
     Active Substance: NEBIVOLOL HYDROCHLORIDE
  8. GAVILYTE G [Concomitant]
     Active Substance: POLYETHYLENE GLYCOL 3350\POTASSIUM CHLORIDE\SODIUM BICARBONATE\SODIUM CHLORIDE\SODIUM SULFATE ANHYDROUS
  9. MYCOPHENOLATE 500 MG [Suspect]
     Active Substance: MYCOPHENOLATE MOFETIL
     Indication: LUNG TRANSPLANT
     Route: 048
     Dates: start: 201909
  10. BONVA [Concomitant]
  11. PROGRAF [Concomitant]
     Active Substance: TACROLIMUS
  12. ADVAIR HFA [Concomitant]
     Active Substance: FLUTICASONE PROPIONATE\SALMETEROL XINAFOATE
  13. DOXYCYCL HYC CAPSULE [Concomitant]
  14. WIXELA INHUB [Concomitant]
     Active Substance: FLUTICASONE PROPIONATE\SALMETEROL XINAFOATE
  15. INSULIN [Concomitant]
     Active Substance: INSULIN NOS
  16. AZITHROMYCIN ANHYDROUS. [Concomitant]
     Active Substance: AZITHROMYCIN ANHYDROUS
  17. GABAPENTIN. [Concomitant]
     Active Substance: GABAPENTIN
  18. PANCREASE MT [Concomitant]
     Active Substance: PANCRELIPASE
  19. SMZ/TMP DS TABLET [Concomitant]
  20. URSODIOL. [Concomitant]
     Active Substance: URSODIOL
  21. MIRTAZAPINE. [Concomitant]
     Active Substance: MIRTAZAPINE
  22. RIFAMPIN. [Concomitant]
     Active Substance: RIFAMPIN
  23. PANCREAZE [Concomitant]
     Active Substance: PANCRELIPASE AMYLASE\PANCRELIPASE LIPASE\PANCRELIPASE PROTEASE
  24. RIFAMPIN. [Concomitant]
     Active Substance: RIFAMPIN
  25. ALBUTERNOL [Concomitant]
  26. HUMALOG [Concomitant]
     Active Substance: INSULIN LISPRO
  27. CELLCEPT [Concomitant]
     Active Substance: MYCOPHENOLATE MOFETIL\MYCOPHENOLATE MOFETIL HYDROCHLORIDE
  28. PANTOPRAZOLE [Concomitant]
     Active Substance: PANTOPRAZOLE
  29. ACCU-CHEK [Concomitant]
  30. ACYCLOVIR. [Concomitant]
     Active Substance: ACYCLOVIR
  31. TACROLIMUS. [Concomitant]
     Active Substance: TACROLIMUS
  32. LEVOFLOXACIN. [Concomitant]
     Active Substance: LEVOFLOXACIN
  33. TEMAZEPAM, [Concomitant]
  34. PROALT [Concomitant]
  35. DRONABINOL. [Concomitant]
     Active Substance: DRONABINOL
  36. CIPROFLOXACIN. [Concomitant]
     Active Substance: CIPROFLOXACIN
  37. VENTOLIN HFA [Concomitant]
     Active Substance: ALBUTEROL SULFATE
  38. MONTELUKAST [Concomitant]
     Active Substance: MONTELUKAST SODIUM

REACTIONS (1)
  - Hospitalisation [None]
